FAERS Safety Report 5135634-2 (Version None)
Quarter: 2006Q4

REPORT INFORMATION
  Report Type: 
  Country: None (occurrence: None)
  Receive Date: 20061020
  Receipt Date: 20061012
  Transmission Date: 20070319
  Serious: Yes (Other)
  Sender: FDA-Public Use
  Company Number: 2006SS000059

PATIENT
  Age: 79 Year
  Sex: Female
  Weight: 95.2554 kg

DRUGS (4)
  1. MYOBLOC [Suspect]
     Indication: APRAXIA
     Dosage: 4000 U; X1; IM
     Route: 030
     Dates: start: 20060630, end: 20060630
  2. MYOBLOC [Suspect]
     Indication: OFF LABEL USE
     Dosage: 4000 U; X1; IM
     Route: 030
     Dates: start: 20060630, end: 20060630
  3. WARFARIN SODIUM [Concomitant]
  4. VITAMIN CAP [Concomitant]

REACTIONS (5)
  - EYE DISCHARGE [None]
  - EYE MOVEMENT DISORDER [None]
  - HYPERSENSITIVITY [None]
  - PERIORBITAL HAEMATOMA [None]
  - THERAPY NON-RESPONDER [None]
